FAERS Safety Report 8143666-5 (Version None)
Quarter: 2012Q1

REPORT INFORMATION
  Report Type: 
  Country: None (occurrence: None)
  Receive Date: 20120217
  Receipt Date: 20120207
  Transmission Date: 20120608
  Serious: Yes (Other)
  Sender: FDA-Public Use
  Company Number: MX-SANOFI-AVENTIS-2012SA008314

PATIENT
  Age: 65 Year
  Sex: Female

DRUGS (3)
  1. DICLOFENAC SODIUM [Concomitant]
     Route: 048
  2. NAPROXEN [Concomitant]
     Route: 048
  3. AMARYL [Suspect]
     Indication: TYPE 2 DIABETES MELLITUS
     Route: 048
     Dates: start: 20090101

REACTIONS (7)
  - OSTEOPOROSIS [None]
  - URINARY TRACT INFECTION [None]
  - ARTHRALGIA [None]
  - HYPERGLYCAEMIA [None]
  - PROTEINURIA [None]
  - VULVOVAGINAL PRURITUS [None]
  - VULVOVAGINAL DISCOMFORT [None]
